FAERS Safety Report 5900220-0 (Version None)
Quarter: 2008Q3

REPORT INFORMATION
  Report Type: 
  Country: None (occurrence: None)
  Receive Date: 20080926
  Receipt Date: 20080917
  Transmission Date: 20090109
  Serious: Yes (Hospitalization, Disabling, Other)
  Sender: FDA-Public Use
  Company Number: FR-JNJFOC-20080904224

PATIENT
  Age: 72 Year
  Sex: Male

DRUGS (3)
  1. TAVANIC [Suspect]
     Indication: PNEUMONIA
     Route: 048
  2. SOLUPRED [Suspect]
     Indication: PNEUMONIA
     Route: 048
  3. LANZOR [Concomitant]
     Route: 065

REACTIONS (14)
  - CARDIAC FAILURE [None]
  - CHRONIC OBSTRUCTIVE PULMONARY DISEASE [None]
  - ERYTHEMA [None]
  - LACTIC ACIDOSIS [None]
  - MUSCLE SPASMS [None]
  - MYALGIA [None]
  - PAIN [None]
  - PARAESTHESIA [None]
  - PERICARDITIS CONSTRICTIVE [None]
  - PRURITUS [None]
  - PULMONARY HYPERTENSION [None]
  - RASH [None]
  - SLEEP APNOEA SYNDROME [None]
  - TENDON DISORDER [None]
